FAERS Safety Report 4948882-9 (Version None)
Quarter: 2006Q1

REPORT INFORMATION
  Report Type: 
  Country: None (occurrence: None)
  Receive Date: 20060321
  Receipt Date: 20060315
  Transmission Date: 20060701
  Serious: Yes (Other)
  Sender: FDA-Public Use
  Company Number: GB-AVENTIS-200612583GDDC

PATIENT
  Age: 12 Year
  Sex: Male

DRUGS (1)
  1. DESMOTABS [Suspect]
     Indication: ENURESIS
     Route: 048
     Dates: start: 20041112

REACTIONS (2)
  - HALLUCINATION [None]
  - SLEEP WALKING [None]
